FAERS Safety Report 5944618-3 (Version None)
Quarter: 2008Q4

REPORT INFORMATION
  Report Type: 
  Country: None (occurrence: None)
  Receive Date: 20081107
  Receipt Date: 20081027
  Transmission Date: 20090506
  Serious: Yes (Other)
  Sender: FDA-Public Use
  Company Number: US-ELI_LILLY_AND_COMPANY-US200810007201

PATIENT
  Age: 55 Year
  Sex: Male

DRUGS (11)
  1. FORTEO [Suspect]
     Indication: OSTEOPOROSIS
     Dosage: 20 UG, DAILY (1/D)
     Dates: start: 20081001, end: 20081026
  2. CARBAMAZEPINE [Concomitant]
  3. FLOMAX [Concomitant]
  4. LISINOPRIL [Concomitant]
  5. LORATADINE [Concomitant]
  6. NEXIUM [Concomitant]
  7. SIMVASTATIN [Concomitant]
  8. ZYPREXA [Concomitant]
  9. RISPERDAL [Concomitant]
  10. ALPRAZOLAM [Concomitant]
  11. ASPIRIN [Concomitant]

REACTIONS (1)
  - CONVULSION [None]
